FAERS Safety Report 5892545-2 (Version None)
Quarter: 2008Q3

REPORT INFORMATION
  Report Type: 
  Country: None (occurrence: None)
  Receive Date: 20080923
  Receipt Date: 20080911
  Transmission Date: 20090109
  Serious: No
  Sender: FDA-Public Use
  Company Number: DE-ELI_LILLY_AND_COMPANY-DE200809002855

PATIENT
  Age: 73 Year
  Sex: Male

DRUGS (5)
  1. CIALIS [Suspect]
     Indication: ERECTILE DYSFUNCTION
     Dosage: 10 MG, 2/W
     Route: 048
     Dates: start: 20080501, end: 20080701
  2. RAMIPRIL [Concomitant]
  3. MICARDIS [Concomitant]
  4. ASPIRIN [Concomitant]
     Dosage: 100 MG, UNKNOWN
  5. SPASMOLYT [Concomitant]

REACTIONS (1)
  - VISUAL IMPAIRMENT [None]
